FAERS Safety Report 7252556-1 (Version None)
Quarter: 2011Q1

REPORT INFORMATION
  Report Type: 
  Country: None (occurrence: None)
  Receive Date: 20110129
  Receipt Date: 20100103
  Transmission Date: 20110831
  Serious: No
  Sender: FDA-Public Use
  Company Number: US-ABBOTT-10P-163-0617383-00

PATIENT
  Sex: Female

DRUGS (2)
  1. UNKNOWN FIBROMYLAGIA MEDICATION [Concomitant]
     Indication: FIBROMYALGIA
  2. HUMIRA [Suspect]
     Indication: RHEUMATOID ARTHRITIS
     Route: 058
     Dates: start: 20090709

REACTIONS (8)
  - NASAL CONGESTION [None]
  - CHEST DISCOMFORT [None]
  - COUGH [None]
  - SINUS HEADACHE [None]
  - DISCOMFORT [None]
  - FATIGUE [None]
  - OROPHARYNGEAL PAIN [None]
  - SINUSITIS [None]
